FAERS Safety Report 5752838-6 (Version None)
Quarter: 2008Q2

REPORT INFORMATION
  Report Type: 
  Country: None (occurrence: None)
  Receive Date: 20080529
  Receipt Date: 20080519
  Transmission Date: 20081010
  Serious: Yes (Other)
  Sender: FDA-Public Use
  Company Number: BR-PFIZER INC-2008043954

PATIENT
  Sex: Female
  Weight: 90 kg

DRUGS (3)
  1. FARLUTAL [Suspect]
     Indication: HORMONE REPLACEMENT THERAPY
     Route: 048
  2. PREMARIN [Concomitant]
     Indication: HORMONE REPLACEMENT THERAPY
     Route: 048
  3. CAPTOPRIL [Concomitant]
     Indication: HYPERTENSION

REACTIONS (11)
  - ASTHENIA [None]
  - CONDITION AGGRAVATED [None]
  - DIZZINESS [None]
  - FLUID RETENTION [None]
  - HEADACHE [None]
  - LABYRINTHITIS [None]
  - NAUSEA [None]
  - SALIVARY HYPERSECRETION [None]
  - VULVOVAGINAL PRURITUS [None]
  - WEIGHT DECREASED [None]
  - WEIGHT LOSS POOR [None]
